FAERS Safety Report 7042911-7 (Version None)
Quarter: 2010Q4

REPORT INFORMATION
  Report Type: 
  Country: None (occurrence: None)
  Receive Date: 20101013
  Receipt Date: 20100413
  Transmission Date: 20110411
  Serious: No
  Sender: FDA-Public Use
  Company Number: US-ASTRAZENECA-2010SE16341

PATIENT
  Age: 80 Year
  Sex: Female

DRUGS (3)
  1. SYMBICORT [Suspect]
     Dosage: 160/4.5, ONE PUFF
     Route: 055
     Dates: start: 20090101
  2. BP PILL [Concomitant]
  3. REFLUX PILL [Concomitant]

REACTIONS (3)
  - COUGH [None]
  - DRUG DOSE OMISSION [None]
  - OROPHARYNGEAL PAIN [None]
